FAERS Safety Report 20589568 (Version 3)
Quarter: 2024Q3

REPORT INFORMATION
  Report Type: Report from Study
  Country: US (occurrence: US)
  Receive Date: 20220314
  Receipt Date: 20240723
  Transmission Date: 20241016
  Serious: Yes (Hospitalization, Other)
  Sender: ACADIA PHARMACEUTICALS
  Company Number: US-ACADIA PHARMACEUTICALS INC.-ACA-2022-PIM-000610

PATIENT
  Sex: Male

DRUGS (4)
  1. NUPLAZID [Suspect]
     Active Substance: PIMAVANSERIN TARTRATE
     Indication: Parkinson^s disease
     Dosage: 34 MILLIGRAM, QD
     Route: 048
  2. NUPLAZID [Suspect]
     Active Substance: PIMAVANSERIN TARTRATE
     Indication: Parkinson^s disease psychosis
     Dosage: UNK MILLIGRAM, QD
  3. NUPLAZID [Suspect]
     Active Substance: PIMAVANSERIN TARTRATE
     Dosage: 34 MILLIGRAM, QD
     Route: 048
     Dates: start: 201707
  4. QUETIAPINE [Suspect]
     Active Substance: QUETIAPINE
     Dosage: UNK

REACTIONS (5)
  - Intestinal obstruction [Unknown]
  - COVID-19 [Unknown]
  - Off label use [Unknown]
  - Constipation [Unknown]
  - Hallucination [Unknown]
